FAERS Safety Report 7706898-3 (Version None)
Quarter: 2011Q3

REPORT INFORMATION
  Report Type: 
  Country: None (occurrence: None)
  Receive Date: 20110818
  Receipt Date: 20110817
  Transmission Date: 20111222
  Serious: Yes (Hospitalization)
  Sender: FDA-Public Use
  Company Number: WAES 1003ESP00069

PATIENT
  Age: 72 Year
  Sex: Female

DRUGS (2)
  1. STRONTIUM RANELATE [Concomitant]
  2. FOSAMAX [Suspect]
     Indication: OSTEOPOROSIS
     Dosage: 10 MG/DAILY PO
     Route: 048
     Dates: start: 19970101

REACTIONS (3)
  - FEMUR FRACTURE [None]
  - FALL [None]
  - PATHOLOGICAL FRACTURE [None]
